FAERS Safety Report 7475937-X (Version None)
Quarter: 2011Q2

REPORT INFORMATION
  Report Type: 
  Country: None (occurrence: None)
  Receive Date: 20110504
  Receipt Date: 20110426
  Transmission Date: 20111010
  Serious: Yes (Other)
  Sender: FDA-Public Use
  Company Number: GER/UKI/11/0017788

PATIENT
  Age: 50 Year
  Sex: Male

DRUGS (12)
  1. ASPIRIN [Concomitant]
  2. ZOLPIDEM TARTRATE [Concomitant]
  3. AMLODIPINE [Concomitant]
  4. TRAMADOL HCL [Concomitant]
  5. ATENOLOL [Concomitant]
  6. IMIPRAMINE [Concomitant]
  7. VALSARTAN [Concomitant]
  8. OMEPRAZOLE [Suspect]
     Indication: THERMAL BURN
     Dosage: 20 MG, ORAL
     Route: 048
     Dates: start: 20090924, end: 20110116
  9. ATORVASTATIN [Concomitant]
  10. CO-CODAMOL (PANADEINE CO) [Concomitant]
  11. METFORMIN (METFORMIN) [Concomitant]
  12. NOVOMIX (INSULIN ASPART) [Concomitant]

REACTIONS (1)
  - ERECTILE DYSFUNCTION [None]
